FAERS Safety Report 16797508 (Version 1)
Quarter: 2019Q3

REPORT INFORMATION
  Report Type: Spontaneous
  Country: PT (occurrence: PT)
  Receive Date: 20190912
  Receipt Date: 20190912
  Transmission Date: 20191005
  Serious: Yes (Other)
  Sender: FDA-Public Use
  Company Number: PT-TEVA-2019-PT-1104767

PATIENT
  Age: 26 Year
  Sex: Female

DRUGS (3)
  1. CLAMOXYL [Concomitant]
     Indication: HELICOBACTER INFECTION
     Route: 048
     Dates: start: 201504
  2. CLARITROMICINA RATIOPHARM [Concomitant]
     Indication: HELICOBACTER INFECTION
     Route: 048
     Dates: start: 201504
  3. OMEPRAZOL RATIOPHARM [Suspect]
     Active Substance: OMEPRAZOLE
     Indication: HELICOBACTER INFECTION
     Route: 048
     Dates: start: 201504

REACTIONS (4)
  - Rash papular [Recovered/Resolved]
  - Rash pruritic [Recovered/Resolved]
  - Rash macular [Recovered/Resolved]
  - Rash generalised [Recovered/Resolved]

NARRATIVE: CASE EVENT DATE: 201504
